FAERS Safety Report 17889467 (Version 1)
Quarter: 2020Q2

REPORT INFORMATION
  Report Type: Report from Study
  Country: CA (occurrence: CA)
  Receive Date: 20200612
  Receipt Date: 20200612
  Transmission Date: 20200714
  Serious: Yes (Hospitalization)
  Sender: FDA-Public Use
  Company Number: CA-JNJFOC-20200608950

PATIENT
  Age: 59 Year
  Sex: Female
  Weight: 77.63 kg

DRUGS (1)
  1. STELARA [Suspect]
     Active Substance: USTEKINUMAB
     Indication: PSORIASIS
     Route: 058
     Dates: start: 201605, end: 201809

REACTIONS (1)
  - Vulval abscess [Not Recovered/Not Resolved]

NARRATIVE: CASE EVENT DATE: 20200528
